FAERS Safety Report 5765511-5 (Version None)
Quarter: 2008Q2

REPORT INFORMATION
  Report Type: 
  Country: None (occurrence: None)
  Receive Date: 20080611
  Receipt Date: 20080605
  Transmission Date: 20081010
  Serious: Yes (Hospitalization, Other)
  Sender: FDA-Public Use
  Company Number: TW-ASTRAZENECA-2008AP04323

PATIENT
  Age: 77 Year
  Sex: Male
  Weight: 59.4 kg

DRUGS (1)
  1. IRESSA [Suspect]
     Indication: NON-SMALL CELL LUNG CANCER
     Route: 048

REACTIONS (4)
  - CONSTIPATION [None]
  - DRUG ERUPTION [None]
  - DYSPEPSIA [None]
  - PYREXIA [None]
